FAERS Safety Report 11647894 (Version 1)
Quarter: 2015Q4

REPORT INFORMATION
  Report Type: Spontaneous
  Country: TH (occurrence: TH)
  Receive Date: 20151021
  Receipt Date: 20151021
  Transmission Date: 20160304
  Serious: Yes (Hospitalization, Other)
  Sender: FDA-Public Use
  Company Number: TH-ACTAVIS-2015-10956

PATIENT
  Age: 75 Year
  Sex: Female

DRUGS (1)
  1. ZOLEDRONIC ACID (UNKNOWN) [Suspect]
     Active Substance: ZOLEDRONIC ACID
     Indication: PROPHYLAXIS
     Dosage: 4 MG, EVERY 6 WEEKS
     Route: 042
     Dates: start: 2002

REACTIONS (2)
  - Periprosthetic fracture [Unknown]
  - Acetabulum fracture [Unknown]

NARRATIVE: CASE EVENT DATE: 2009
